FAERS Safety Report 5444622-8 (Version None)
Quarter: 2007Q3

REPORT INFORMATION
  Report Type: 
  Country: None (occurrence: None)
  Receive Date: 20070827
  Receipt Date: 20070814
  Transmission Date: 20080115
  Serious: Yes (Hospitalization)
  Sender: FDA-Public Use
  Company Number: CHNY2007AU02895

PATIENT
  Age: 75 Year
  Sex: Male

DRUGS (4)
  1. NICOTINE [Suspect]
     Indication: SMOKING CESSATION THERAPY
     Dosage: 21 MG, TRANSDERMAL
     Route: 062
     Dates: start: 20070701, end: 20070810
  2. ANTIARRHYTHMICS [Concomitant]
  3. ANTIHYPERTENSIVE DRUGS (NO INGREDIENTS/SUBSRANCES) [Concomitant]
  4. ANTIHISTAMINES (NO INGREDIENTS/SUBSRANCES) [Concomitant]

REACTIONS (1)
  - RASH MACULO-PAPULAR [None]
